FAERS Safety Report 9834056 (Version 1)
Quarter: 2014Q1

REPORT INFORMATION
  Report Type: Report from Study
  Country: US (occurrence: US)
  Receive Date: 20140122
  Receipt Date: 20140122
  Transmission Date: 20141002
  Serious: Yes (Other)
  Sender: FDA-Public Use
  Company Number: US-ROCHE-1314107

PATIENT
  Sex: Female

DRUGS (7)
  1. AVASTIN [Suspect]
     Indication: DIABETIC RETINAL OEDEMA
     Dosage: 25/APR/2012, 25/JUL/2012
     Route: 065
  2. AVASTIN [Suspect]
     Indication: DIABETIC RETINOPATHY
  3. AVASTIN [Suspect]
     Indication: DIABETES MELLITUS
  4. LUCENTIS [Suspect]
     Indication: DIABETIC RETINAL OEDEMA
     Dosage: APRIL 2013
     Route: 050
  5. LUCENTIS [Suspect]
     Indication: DIABETIC RETINOPATHY
  6. LUCENTIS [Suspect]
     Indication: DIABETES MELLITUS
  7. COMBIGAN [Concomitant]
     Dosage: OD
     Route: 065

REACTIONS (5)
  - Diabetic retinal oedema [Unknown]
  - Vision blurred [Unknown]
  - Visual acuity reduced [Unknown]
  - Nausea [Unknown]
  - Diabetic retinopathy [Unknown]
